FAERS Safety Report 25085795 (Version 1)
Quarter: 2025Q1

REPORT INFORMATION
  Report Type: Spontaneous
  Country: US (occurrence: US)
  Receive Date: 20250317
  Receipt Date: 20250317
  Transmission Date: 20250409
  Serious: Yes (Other)
  Sender: CSL BEHRING
  Company Number: US-BEH-2025198806

PATIENT
  Age: 37 Year
  Sex: Male
  Weight: 158.2 kg

DRUGS (1)
  1. MIRCERA [Suspect]
     Active Substance: METHOXY POLYETHYLENE GLYCOL-EPOETIN BETA
     Indication: Anaemia
     Dosage: 200 ?G, QOW
     Route: 040
     Dates: start: 20250308, end: 20250308

REACTIONS (4)
  - Drug hypersensitivity [Recovering/Resolving]
  - Discomfort [Recovering/Resolving]
  - Retching [Recovering/Resolving]
  - Unresponsive to stimuli [Recovering/Resolving]

NARRATIVE: CASE EVENT DATE: 20250308
